FAERS Safety Report 12076229 (Version 3)
Quarter: 2016Q2

REPORT INFORMATION
  Report Type: Spontaneous
  Country: JP (occurrence: JP)
  Receive Date: 20160215
  Receipt Date: 20160401
  Transmission Date: 20160815
  Serious: Yes (Hospitalization, Other)
  Sender: FDA-Public Use
  Company Number: JP-ASTRAZENECA-2016SE14193

PATIENT
  Age: 21540 Day
  Sex: Female
  Weight: 62 kg

DRUGS (15)
  1. BYDUREON [Suspect]
     Active Substance: EXENATIDE
     Indication: TYPE 2 DIABETES MELLITUS
     Route: 058
     Dates: start: 20160201, end: 201602
  2. BONOTEO [Concomitant]
     Active Substance: MINODRONIC ACID
     Indication: OSTEOPOROSIS
     Route: 048
     Dates: start: 201312
  3. BAYASPIRIN [Concomitant]
     Active Substance: ASPIRIN
     Route: 048
  4. PREDONINE [Suspect]
     Active Substance: PREDNISOLONE\PREDNISOLONE ACETATE\PREDNISOLONE SODIUM SUCCINATE
     Indication: MIXED CONNECTIVE TISSUE DISEASE
     Route: 048
     Dates: start: 2008
  5. PREDONINE [Suspect]
     Active Substance: PREDNISOLONE\PREDNISOLONE ACETATE\PREDNISOLONE SODIUM SUCCINATE
     Indication: MIXED CONNECTIVE TISSUE DISEASE
     Route: 048
     Dates: start: 20160114
  6. RENIVACE [Concomitant]
     Active Substance: ENALAPRIL
     Route: 048
  7. XARELTO [Concomitant]
     Active Substance: RIVAROXABAN
     Route: 048
     Dates: start: 20160112
  8. METGLUCO [Concomitant]
     Active Substance: METFORMIN HYDROCHLORIDE
     Route: 048
     Dates: start: 20160121
  9. LASIX [Concomitant]
     Active Substance: FUROSEMIDE
     Route: 048
  10. MAINTATE [Concomitant]
     Active Substance: BISOPROLOL FUMARATE
     Route: 048
  11. GASTER [Concomitant]
     Active Substance: FAMOTIDINE
     Route: 048
  12. FUNGIZONE [Concomitant]
     Active Substance: AMPHOTERICIN B
     Indication: MYOCARDITIS
     Dosage: DOSE UNKNOWN
     Route: 065
     Dates: start: 20160114
  13. HALIZON [Concomitant]
     Route: 048
     Dates: start: 20160114
  14. ALDACTONE A [Concomitant]
     Active Substance: SPIRONOLACTONE
     Route: 048
  15. SULFAMETHOXAZOLE AND TRIMETHOPRIM [Concomitant]
     Active Substance: SULFAMETHOXAZOLE\TRIMETHOPRIM
     Indication: MYOCARDITIS
     Dosage: DOSE UNKNOWN, EVERY DAY
     Route: 048
     Dates: start: 20160114

REACTIONS (5)
  - Shock [Unknown]
  - Cytomegalovirus gastrointestinal ulcer [Unknown]
  - Gastrointestinal hypomotility [Unknown]
  - Pneumatosis intestinalis [Not Recovered/Not Resolved]
  - Cytomegalovirus gastritis [Unknown]

NARRATIVE: CASE EVENT DATE: 20160204
